FAERS Safety Report 15626498 (Version 1)
Quarter: 2018Q4

REPORT INFORMATION
  Report Type: Spontaneous
  Country: US (occurrence: US)
  Receive Date: 20181116
  Receipt Date: 20181116
  Transmission Date: 20190205
  Serious: No
  Sender: FDA-Public Use
  Company Number: US-GLAXOSMITHKLINE-US2018202786

PATIENT
  Age: 66 Year
  Sex: Male

DRUGS (2)
  1. FLONASE [Suspect]
     Active Substance: FLUTICASONE PROPIONATE
     Indication: NASAL CONGESTION
     Dosage: 1 UNK, 1D
     Route: 045
     Dates: start: 20181102, end: 20181104
  2. FLONASE [Suspect]
     Active Substance: FLUTICASONE PROPIONATE
     Indication: HYPERSENSITIVITY
     Dosage: 1 UNK, 1D
     Route: 045

REACTIONS (3)
  - Accidental exposure to product [Unknown]
  - Drug ineffective [Unknown]
  - Nausea [Recovering/Resolving]
